FAERS Safety Report 5004595-9 (Version None)
Quarter: 2006Q2

REPORT INFORMATION
  Report Type: 
  Country: None (occurrence: None)
  Receive Date: 20060512
  Receipt Date: 20060501
  Transmission Date: 20061013
  Serious: Yes (Death, Hospitalization)
  Sender: FDA-Public Use
  Company Number: 220331

PATIENT
  Age: 50 Year
  Sex: Male
  Weight: 86.2 kg

DRUGS (5)
  1. BEVACIZUMAB (BEVACIZUMAB) PWDR + SOLVENT, INFUSION SOLN, 100MG [Suspect]
     Indication: OESOPHAGEAL CARCINOMA
     Dosage: 440 , Q2W, INTRAVENOUS
     Route: 042
     Dates: start: 20050428, end: 20050824
  2. IRINOTECAN HCL [Suspect]
     Indication: OESOPHAGEAL CARCINOMA
     Dosage: 309, INTRAVENOUS
     Route: 042
     Dates: start: 20050426, end: 20050824
  3. FLUOROURACIL [Suspect]
     Indication: OESOPHAGEAL CARCINOMA
     Dosage: 824, INTRAVENOUS; SEE IMAGE
     Route: 042
     Dates: start: 20050426, end: 20050824
  4. FLUOROURACIL [Suspect]
     Indication: OESOPHAGEAL CARCINOMA
     Dosage: 824, INTRAVENOUS; SEE IMAGE
     Route: 042
     Dates: start: 20050426, end: 20050824
  5. LEUCOVORIN CALCIUM [Suspect]
     Indication: OESOPHAGEAL CARCINOMA
     Dosage: 824, INTRAVENOUS
     Route: 042
     Dates: start: 20050426, end: 20050824

REACTIONS (25)
  - ABDOMINAL PAIN [None]
  - ATELECTASIS [None]
  - BLOOD ALKALINE PHOSPHATASE INCREASED [None]
  - BLOOD PRESSURE DECREASED [None]
  - BRONCHOPNEUMONIA [None]
  - CARDIO-RESPIRATORY ARREST [None]
  - CHEST PAIN [None]
  - COUGH [None]
  - DECREASED APPETITE [None]
  - GASTROINTESTINAL PERFORATION [None]
  - HAEMATOCRIT DECREASED [None]
  - HAEMOGLOBIN DECREASED [None]
  - HEPATIC LESION [None]
  - LUNG CONSOLIDATION [None]
  - LYMPHADENOPATHY [None]
  - NIGHT SWEATS [None]
  - PLATELET COUNT INCREASED [None]
  - PLEURAL EFFUSION [None]
  - PNEUMOTHORAX [None]
  - PULMONARY EMBOLISM [None]
  - PULMONARY INFARCTION [None]
  - SHOULDER PAIN [None]
  - TUMOUR HAEMORRHAGE [None]
  - URINE OUTPUT DECREASED [None]
  - WHITE BLOOD CELL COUNT INCREASED [None]
